FAERS Safety Report 7651678-0 (Version None)
Quarter: 2011Q3

REPORT INFORMATION
  Report Type: 
  Country: None (occurrence: None)
  Receive Date: 20110802
  Receipt Date: 20100324
  Transmission Date: 20111222
  Serious: Yes (Hospitalization, Other)
  Sender: FDA-Public Use
  Company Number: PHHY2010TW16254

PATIENT
  Sex: Female

DRUGS (2)
  1. GLEEVEC [Suspect]
  2. SPRYCEL [Suspect]
     Dosage: 2 DF (2 PILL), UNK

REACTIONS (2)
  - GASTRIC ULCER [None]
  - RHEUMATOID ARTHRITIS [None]
